FAERS Safety Report 4982168-1 (Version None)
Quarter: 2006Q2

REPORT INFORMATION
  Report Type: 
  Country: None (occurrence: None)
  Receive Date: 20060419
  Receipt Date: 20060327
  Transmission Date: 20061013
  Serious: Yes (Hospitalization)
  Sender: FDA-Public Use
  Company Number: US200603006485

PATIENT
  Age: 62 Year
  Sex: Female
  Weight: 158.7 kg

DRUGS (6)
  1. HUMALOG PEN [Suspect]
     Indication: DIABETES MELLITUS
     Dosage: AS NEEDED
  2. HUMULIN 70/30 [Suspect]
     Indication: DIABETES MELLITUS
     Dosage: AS NEEDED
  3. HUMALOG MIX 75/25 [Suspect]
     Indication: DIABETES MELLITUS
     Dosage: AS NEEDED
  4. HUMALOG PEN [Concomitant]
  5. HUMULIN 70/30 PEN [Concomitant]
  6. HUMALOG MIX 25L/75NPL PEN [Concomitant]

REACTIONS (6)
  - ASTHMA [None]
  - BEDRIDDEN [None]
  - CARDIAC FAILURE CONGESTIVE [None]
  - FOOT FRACTURE [None]
  - PHARMACEUTICAL PRODUCT COMPLAINT [None]
  - PNEUMONIA [None]
